FAERS Safety Report 9978174 (Version 2)
Quarter: 2014Q2

REPORT INFORMATION
  Report Type: Report from Study
  Country: US (occurrence: US)
  Receive Date: 20140306
  Receipt Date: 20140429
  Transmission Date: 20141212
  Serious: Yes (Hospitalization, Other)
  Sender: FDA-Public Use
  Company Number: US-TEVA-467079USA

PATIENT
  Age: 64 Year
  Sex: Female

DRUGS (1)
  1. CLOZAPINE [Suspect]
     Indication: SCHIZOPHRENIA, PARANOID TYPE
     Route: 048

REACTIONS (6)
  - Hypernatraemia [Recovered/Resolved]
  - Diabetes insipidus [Unknown]
  - Mental status changes [Recovered/Resolved with Sequelae]
  - Lobar pneumonia [Unknown]
  - Dehydration [Unknown]
  - Adverse event [Unknown]
